FAERS Safety Report 18556235 (Version 6)
Quarter: 2021Q2

REPORT INFORMATION
  Report Type: Spontaneous
  Country: CA (occurrence: CA)
  Receive Date: 20201128
  Receipt Date: 20210618
  Transmission Date: 20210717
  Serious: Yes (Hospitalization, Other)
  Sender: FDA-Public Use
  Company Number: CA-CELLTRION INC.-2020CA027137

PATIENT

DRUGS (9)
  1. INFLECTRA [Suspect]
     Active Substance: INFLIXIMAB-DYYB
     Indication: COLITIS ULCERATIVE
     Dosage: 800 MG Q 2, 6 WEEKS THEN EVERY 8 WEEKS (ALSO REPORTED AS 10 MG/KG)
     Route: 042
     Dates: start: 20200816
  2. INFLECTRA [Suspect]
     Active Substance: INFLIXIMAB-DYYB
     Dosage: 800MG,EVERY 8WEEK
     Route: 042
     Dates: start: 20201130, end: 20210325
  3. PREDNISONE. [Concomitant]
     Active Substance: PREDNISONE
     Dosage: 30 MG TAPER
     Route: 065
  4. INFLECTRA [Suspect]
     Active Substance: INFLIXIMAB-DYYB
     Dosage: 800 MG Q 2, 6 WEEKS THEN EVERY 8 WEEKS (ALSO REPORTED AS 10 MG/KG)
     Route: 042
     Dates: start: 20200903
  5. INFLECTRA [Suspect]
     Active Substance: INFLIXIMAB-DYYB
     Dosage: 800 MG Q 2, 6 WEEKS THEN EVERY 8 WEEKS (ALSO REPORTED AS 10 MG/KG)
     Route: 042
     Dates: start: 20201001
  6. INFLECTRA [Suspect]
     Active Substance: INFLIXIMAB-DYYB
     Dosage: 800 MG Q 0, 2, 6 WEEKS
     Route: 042
     Dates: start: 20200816, end: 20201001
  7. INFLECTRA [Suspect]
     Active Substance: INFLIXIMAB-DYYB
     Dosage: 800 MG Q 2, 6 WEEKS THEN EVERY 8 WEEKS (ALSO REPORTED AS 10 MG/KG)
     Route: 042
     Dates: start: 20201001
  8. INFLECTRA [Suspect]
     Active Substance: INFLIXIMAB-DYYB
     Dosage: 800 MG Q 2, 6 WEEKS THEN EVERY 8 WEEKS (ALSO REPORTED AS 10 MG/KG)
     Route: 042
     Dates: start: 20210128
  9. INFLECTRA [Suspect]
     Active Substance: INFLIXIMAB-DYYB
     Dosage: 800 MG Q 2, 6 WEEKS THEN EVERY 8 WEEKS (ALSO REPORTED AS 10 MG/KG)
     Route: 042
     Dates: start: 20210326

REACTIONS (8)
  - Drug ineffective [Unknown]
  - Nephrolithiasis [Unknown]
  - Infection [Unknown]
  - Pyrexia [Unknown]
  - Off label use [Unknown]
  - Intentional product use issue [Unknown]
  - Condition aggravated [Unknown]
  - Urosepsis [Unknown]

NARRATIVE: CASE EVENT DATE: 20200816
